FAERS Safety Report 8979142 (Version 1)
Quarter: 2012Q4

REPORT INFORMATION
  Report Type: 
  Country: US (occurrence: US)
  Receive Date: 20121221
  Receipt Date: 20121221
  Transmission Date: 20130627
  Serious: Yes (Other)
  Sender: FDA-Public Use
  Company Number: US-GLAXOSMITHKLINE-A1006057A

PATIENT
  Age: 80 Year
  Sex: Male

DRUGS (8)
  1. VOTRIENT [Suspect]
     Indication: SARCOMA
     Dosage: 800MG Per day
     Route: 048
     Dates: start: 201208, end: 201212
  2. LOSARTAN [Concomitant]
  3. ATENOLOL [Concomitant]
  4. ASPIRIN [Concomitant]
  5. PRAVASTATIN [Concomitant]
  6. AMBIEN [Concomitant]
  7. HYDROCODONE [Concomitant]
  8. OXYCONTIN [Concomitant]

REACTIONS (4)
  - Dysentery [Recovered/Resolved]
  - Diarrhoea [Recovered/Resolved]
  - Weight decreased [Recovered/Resolved]
  - Drug ineffective [Unknown]
